FAERS Safety Report 7183572-6 (Version None)
Quarter: 2010Q4

REPORT INFORMATION
  Report Type: 
  Country: None (occurrence: None)
  Receive Date: 20101210
  Receipt Date: 20101129
  Transmission Date: 20110411
  Serious: Yes (Other)
  Sender: FDA-Public Use
  Company Number: ACO_20641_2010

PATIENT
  Age: 61 Year
  Sex: Female
  Weight: 57.6 kg

DRUGS (6)
  1. AMPYRA [Suspect]
     Indication: GAIT DISTURBANCE
     Dosage: 10 MG, BID, ORAL ; 10 MG, QD, ORAL ; 10 MG, BID, ORAL
     Route: 048
     Dates: start: 20100518, end: 20100528
  2. AMPYRA [Suspect]
     Indication: GAIT DISTURBANCE
     Dosage: 10 MG, BID, ORAL ; 10 MG, QD, ORAL ; 10 MG, BID, ORAL
     Route: 048
     Dates: start: 20100726, end: 20100907
  3. AMPYRA [Suspect]
     Indication: GAIT DISTURBANCE
     Dosage: 10 MG, BID, ORAL ; 10 MG, QD, ORAL ; 10 MG, BID, ORAL
     Route: 048
     Dates: start: 20100907
  4. BACLOFEN [Concomitant]
  5. AMITRIPTYLINE HYDROCHLORIDE [Concomitant]
  6. FOSAMAX [Concomitant]

REACTIONS (5)
  - APHASIA [None]
  - CONFUSIONAL STATE [None]
  - INAPPROPRIATE SCHEDULE OF DRUG ADMINISTRATION [None]
  - MEMORY IMPAIRMENT [None]
  - TOXIC ENCEPHALOPATHY [None]
